FAERS Safety Report 4966899-5 (Version None)
Quarter: 2006Q2

REPORT INFORMATION
  Report Type: 
  Country: None (occurrence: None)
  Receive Date: 20060407
  Receipt Date: 20050718
  Transmission Date: 20061013
  Serious: Yes (Hospitalization)
  Sender: FDA-Public Use
  Company Number: US-MERCK-0507USA02266

PATIENT
  Age: 45 Year
  Sex: Male
  Weight: 90 kg

DRUGS (1)
  1. VIOXX [Suspect]
     Indication: JOINT INJURY
     Route: 048
     Dates: start: 20020101

REACTIONS (2)
  - CEREBROVASCULAR ACCIDENT [None]
  - DEPRESSION [None]
